FAERS Safety Report 8673280 (Version 3)
Quarter: 2018Q4

REPORT INFORMATION
  Report Type: Spontaneous
  Country: FR (occurrence: FR)
  Receive Date: 20120719
  Receipt Date: 20181113
  Transmission Date: 20190205
  Serious: Yes (Hospitalization)
  Sender: FDA-Public Use
  Company Number: FR-ASTRAZENECA-2012SE47800

PATIENT
  Age: 31422 Day
  Sex: Male
  Weight: 66 kg

DRUGS (21)
  1. CARDENSIEL [Concomitant]
     Active Substance: BISOPROLOL FUMARATE
  2. SYMBICORT [Suspect]
     Active Substance: BUDESONIDE\FORMOTEROL FUMARATE DIHYDRATE
     Indication: COUGH
     Route: 055
     Dates: start: 20120114
  3. PREVISCAN (FLUINDIONE) [Interacting]
     Active Substance: FLUINDIONE
     Route: 048
  4. GAVISCON [Concomitant]
     Active Substance: ALUMINUM HYDROXIDE\MAGNESIUM CARBONATE
  5. COZAAR [Concomitant]
     Active Substance: LOSARTAN POTASSIUM
  6. VASTEN [Concomitant]
     Active Substance: PRAVASTATIN SODIUM
  7. TRINITRINE [Concomitant]
     Active Substance: NITROGLYCERIN
  8. MONICOR LP [Concomitant]
     Active Substance: ISOSORBIDE MONONITRATE
  9. TOPLEXIL [Concomitant]
     Route: 048
     Dates: start: 20120114
  10. LASILIX [Concomitant]
     Active Substance: FUROSEMIDE
  11. ALLOPURINOL. [Concomitant]
     Active Substance: ALLOPURINOL
  12. XATRAL [Concomitant]
     Active Substance: ALFUZOSIN
  13. VOLTAREN [Concomitant]
     Active Substance: DICLOFENAC SODIUM
  14. PREVISCAN (FLUINDIONE) [Interacting]
     Active Substance: FLUINDIONE
     Route: 048
  15. DOLIPRANE [Concomitant]
     Active Substance: ACETAMINOPHEN
  16. INIPOMP [Concomitant]
     Active Substance: PANTOPRAZOLE SODIUM
  17. CLARITYNE [Concomitant]
     Active Substance: LORATADINE
  18. NEORECORMON [Concomitant]
     Active Substance: ERYTHROPOIETIN
  19. SOLUPRED PREDNISOLONE SODIUM SULFOBENZOATE) [Interacting]
     Active Substance: PREDNISOLONE SODIUM METAZOATE
     Indication: COUGH
     Route: 048
     Dates: start: 20120114
  20. KALEORID [Concomitant]
     Active Substance: POTASSIUM CHLORIDE
  21. TIORFAN [Concomitant]
     Active Substance: RACECADOTRIL

REACTIONS (3)
  - Drug interaction [Recovered/Resolved]
  - International normalised ratio increased [Recovered/Resolved]
  - Haemoptysis [Recovered/Resolved]

NARRATIVE: CASE EVENT DATE: 20120121
